FAERS Safety Report 19524544 (Version 2)
Quarter: 2021Q3

REPORT INFORMATION
  Report Type: Spontaneous
  Country: GB (occurrence: GB)
  Receive Date: 20210712
  Receipt Date: 20210803
  Transmission Date: 20211014
  Serious: Yes (Other)
  Sender: FDA-Public Use
  Company Number: GB-ABBVIE-21K-167-3984184-00

PATIENT
  Age: 65 Year
  Sex: Male
  Weight: 83.7 kg

DRUGS (4)
  1. SKYRIZI [Suspect]
     Active Substance: RISANKIZUMAB-RZAA
     Indication: PSORIASIS
     Route: 058
     Dates: start: 20210222
  2. APIXABAN [Concomitant]
     Active Substance: APIXABAN
     Indication: TYPE 2 DIABETES MELLITUS
  3. ATORVASTATIN [Concomitant]
     Active Substance: ATORVASTATIN
     Indication: TYPE 2 DIABETES MELLITUS
  4. METFORMIN [Concomitant]
     Active Substance: METFORMIN HYDROCHLORIDE
     Indication: TYPE 2 DIABETES MELLITUS

REACTIONS (4)
  - Glycosylated haemoglobin increased [Unknown]
  - Lentigo maligna [Unknown]
  - Blood triglycerides increased [Unknown]
  - Thyroxine free increased [Unknown]

NARRATIVE: CASE EVENT DATE: 20210705
